FAERS Safety Report 4461620-1 (Version None)
Quarter: 2004Q3

REPORT INFORMATION
  Report Type: 
  Country: None (occurrence: None)
  Receive Date: 20040923
  Receipt Date: 20040913
  Transmission Date: 20050211
  Serious: Yes (Disabling)
  Sender: FDA-Public Use
  Company Number: 2004-119894-NL

PATIENT
  Age: 59 Year
  Sex: Female

DRUGS (10)
  1. MIRTAZAPINE [Suspect]
     Dosage: DF
  2. SALBUTAMOL SULFATE [Concomitant]
  3. BECOMETASONE DIPROPIONATE [Concomitant]
  4. ATORVASTATIN CALCIUM [Concomitant]
  5. VALSARTAN [Concomitant]
  6. AMLODIPINE [Concomitant]
  7. CLOPIDOGREL [Concomitant]
  8. FUROSEMIDE [Concomitant]
  9. ZOLPIDEM TARTRATE [Concomitant]
  10. DIGOXIN [Concomitant]

REACTIONS (3)
  - CONDITION AGGRAVATED [None]
  - DEPRESSION [None]
  - FOOD CRAVING [None]
